FAERS Safety Report 6944992-5 (Version None)
Quarter: 2010Q3

REPORT INFORMATION
  Report Type: 
  Country: None (occurrence: None)
  Receive Date: 20100827
  Receipt Date: 20100820
  Transmission Date: 20110219
  Serious: Yes (Hospitalization)
  Sender: FDA-Public Use
  Company Number: IT-BAYER-201036855GPV

PATIENT
  Age: 58 Year
  Sex: Male

DRUGS (10)
  1. ASPIRIN [Suspect]
     Indication: PERSISTENT GENERALISED LYMPHADENOPATHY
     Dosage: TOTAL DAILY DOSE: 100 MG
     Route: 048
     Dates: start: 20100717, end: 20100722
  2. CEFUROXIME AXETIL [Suspect]
     Indication: PERSISTENT GENERALISED LYMPHADENOPATHY
     Route: 048
     Dates: start: 20100721, end: 20100722
  3. TREDAPTIVE [Suspect]
     Indication: HYPERLIPASAEMIA
     Route: 048
     Dates: start: 20100717, end: 20100722
  4. AMLODIPINE [Concomitant]
     Route: 048
  5. ROSUVASTATIN [Concomitant]
     Route: 048
  6. RAMIPRIL [Concomitant]
     Route: 048
  7. NEBIVOLOLO ACTAVIS [Concomitant]
     Route: 048
  8. SEACOR [Concomitant]
     Route: 048
  9. METFORMINA BLUEFISH [Concomitant]
     Route: 048
  10. LANTUS [Concomitant]
     Route: 059

REACTIONS (3)
  - ARTHRITIS [None]
  - LYMPHADENOPATHY [None]
  - RASH GENERALISED [None]
